FAERS Safety Report 18355668 (Version 1)
Quarter: 2020Q4

REPORT INFORMATION
  Report Type: Spontaneous
  Country: US (occurrence: US)
  Receive Date: 20201007
  Receipt Date: 20201007
  Transmission Date: 20210114
  Serious: Yes (Other)
  Sender: FDA-Public Use
  Company Number: None

PATIENT
  Age: 33 Month
  Sex: Male
  Weight: 15.2 kg

DRUGS (2)
  1. BENEFIX [Suspect]
     Active Substance: COAGULATION FACTOR IX RECOMBINANT HUMAN\ISOPROPYL ALCOHOL
     Indication: FACTOR IX DEFICIENCY
     Dosage: ?          OTHER FREQUENCY:AS REQUIRED;?
     Route: 040
     Dates: start: 20200924, end: 20200924
  2. BENEFIX [Suspect]
     Active Substance: COAGULATION FACTOR IX RECOMBINANT HUMAN\ISOPROPYL ALCOHOL
     Indication: FACTOR IX DEFICIENCY
     Dosage: ?          OTHER FREQUENCY:AS REQUIRED;?
     Route: 040
     Dates: start: 20200924, end: 20200924

REACTIONS (4)
  - Flushing [None]
  - Cyanosis [None]
  - Rash macular [None]
  - Cough [None]

NARRATIVE: CASE EVENT DATE: 20200924
